FAERS Safety Report 24249435 (Version 3)
Quarter: 2025Q3

REPORT INFORMATION
  Report Type: Spontaneous
  Country: US (occurrence: US)
  Receive Date: 20240826
  Receipt Date: 20250816
  Transmission Date: 20251020
  Serious: No
  Sender: SANOFI AVENTIS
  Company Number: US-SA-SAC20240816001371

PATIENT
  Age: 83 Year
  Sex: Female

DRUGS (21)
  1. KEVZARA [Suspect]
     Active Substance: SARILUMAB
     Indication: Polymyalgia rheumatica
     Dosage: 200 MG, QOW
     Route: 058
     Dates: start: 20240525
  2. CLOPIDOGREL [Concomitant]
     Active Substance: CLOPIDOGREL BISULFATE
  3. VITAMIN B12 [Concomitant]
     Active Substance: CYANOCOBALAMIN
  4. NEXIUM [Concomitant]
     Active Substance: ESOMEPRAZOLE MAGNESIUM
  5. BENADRYL [Concomitant]
     Active Substance: DIPHENHYDRAMINE HYDROCHLORIDE
  6. CEFUROXIME [Concomitant]
     Active Substance: CEFUROXIME
  7. BIOTIN [Concomitant]
     Active Substance: BIOTIN
  8. METOPROLOL SUCCINATE [Concomitant]
     Active Substance: METOPROLOL SUCCINATE
  9. LISINOPRIL [Concomitant]
     Active Substance: LISINOPRIL
  10. ATORVASTATIN CALCIUM [Concomitant]
     Active Substance: ATORVASTATIN CALCIUM
  11. VITAMIN D NOS [Concomitant]
     Active Substance: CHOLECALCIFEROL\ERGOCALCIFEROL
  12. DOCUSATE CALCIUM [Concomitant]
     Active Substance: DOCUSATE CALCIUM
  13. ASPIRIN [Concomitant]
     Active Substance: ASPIRIN
  14. TRIAMTERENE [Concomitant]
     Active Substance: TRIAMTERENE
  15. DULOXETINE [Concomitant]
     Active Substance: DULOXETINE
  16. ASPIRIN [Concomitant]
     Active Substance: ASPIRIN
  17. MACRODANTIN [Concomitant]
     Active Substance: NITROFURANTOIN
  18. BUPROPION HYDROCHLORIDE [Concomitant]
     Active Substance: BUPROPION HYDROCHLORIDE
  19. ATORVASTATIN [Concomitant]
     Active Substance: ATORVASTATIN
  20. MYRBETRIQ [Concomitant]
     Active Substance: MIRABEGRON
  21. METHENAMINE [Concomitant]
     Active Substance: METHENAMINE

REACTIONS (5)
  - Injection site mass [Unknown]
  - Contusion [Not Recovered/Not Resolved]
  - Injection site swelling [Recovered/Resolved]
  - Urinary tract infection [Not Recovered/Not Resolved]
  - Injection site erythema [Recovered/Resolved]

NARRATIVE: CASE EVENT DATE: 20240101
